FAERS Safety Report 8971970 (Version 1)
Quarter: 2012Q4

REPORT INFORMATION
  Report Type: 
  Country: DE (occurrence: DE)
  Receive Date: 20121218
  Receipt Date: 20121218
  Transmission Date: 20130627
  Serious: Yes (Hospitalization, Other)
  Sender: FDA-Public Use
  Company Number: GXKR2012DE003848

PATIENT
  Age: 57 Year
  Sex: Male

DRUGS (3)
  1. METHOTREXATE [Suspect]
     Indication: PSORIASIS
     Dosage: 15 mg, UNK
     Route: 065
  2. HUMIRA [Suspect]
     Indication: PSORIASIS
     Dosage: UNK
     Dates: start: 201210
  3. CORTISONE [Concomitant]
     Indication: PSORIASIS

REACTIONS (6)
  - Ascites [Unknown]
  - Gastrointestinal disorder [Unknown]
  - Spermatic cord disorder [Unknown]
  - Local swelling [Unknown]
  - Abdominal pain lower [Unknown]
  - Malaise [Unknown]
